FAERS Safety Report 23886658 (Version 2)
Quarter: 2024Q4

REPORT INFORMATION
  Report Type: Report from Study
  Country: US (occurrence: US)
  Receive Date: 20240522
  Receipt Date: 20241227
  Transmission Date: 20250115
  Serious: Yes (Disabling, Other)
  Sender: ROCHE
  Company Number: US-ROCHE-3145034

PATIENT
  Sex: Male

DRUGS (3)
  1. CELLCEPT [Suspect]
     Active Substance: MYCOPHENOLATE MOFETIL
     Indication: Renal transplant
     Dosage: 1 TAB PO BID
     Route: 048
  2. CELLCEPT [Suspect]
     Active Substance: MYCOPHENOLATE MOFETIL
     Route: 065
  3. CELLCEPT [Suspect]
     Active Substance: MYCOPHENOLATE MOFETIL
     Indication: Renal transplant
     Route: 065

REACTIONS (5)
  - Off label use [Unknown]
  - Product prescribing error [Unknown]
  - COVID-19 [Unknown]
  - Blindness [Unknown]
  - Blindness [Unknown]
